FAERS Safety Report 5393391-9 (Version None)
Quarter: 2007Q3

REPORT INFORMATION
  Report Type: 
  Country: None (occurrence: None)
  Receive Date: 20070717
  Receipt Date: 20070717
  Transmission Date: 20080115
  Serious: No
  Sender: FDA-Public Use
  Company Number: None

PATIENT
  Age: 26 Year
  Sex: Female
  Weight: 52.1637 kg

DRUGS (1)
  1. CREST PRO HEALTH MOUTH WASH CREST [Suspect]
     Indication: DENTAL DISORDER PROPHYLAXIS
     Dates: start: 20070614, end: 20070714

REACTIONS (4)
  - AGEUSIA [None]
  - PHARMACEUTICAL PRODUCT COMPLAINT [None]
  - TONGUE DISCOLOURATION [None]
  - TOOTH DISCOLOURATION [None]
